FAERS Safety Report 9199681 (Version 1)
Quarter: 2013Q1

REPORT INFORMATION
  Report Type: Spontaneous
  Country: BE (occurrence: BE)
  Receive Date: 20130329
  Receipt Date: 20130329
  Transmission Date: 20140127
  Serious: Yes (Hospitalization)
  Sender: FDA-Public Use
  Company Number: BE-009507513-1303BEL007464

PATIENT
  Age: 75 Year
  Sex: Male

DRUGS (2)
  1. ONCOTICE [Suspect]
     Indication: BLADDER CANCER
     Dosage: UNK, QW
     Route: 043
     Dates: start: 2008
  2. ONCOTICE [Suspect]
     Dosage: 6 MONTHLY LAVAGES

REACTIONS (6)
  - Mycotic aneurysm [Recovering/Resolving]
  - Intervertebral discitis [Recovering/Resolving]
  - Oedema [Recovering/Resolving]
  - Weight decreased [Recovering/Resolving]
  - Night sweats [Recovering/Resolving]
  - Pyrexia [Recovering/Resolving]
